FAERS Safety Report 5195517-9 (Version None)
Quarter: 2007Q1

REPORT INFORMATION
  Report Type: 
  Country: None (occurrence: None)
  Receive Date: 20070102
  Receipt Date: 20061221
  Transmission Date: 20070707
  Serious: Yes (Other)
  Sender: FDA-Public Use
  Company Number: JP-JNJFOC-20061104356

PATIENT
  Sex: Male

DRUGS (22)
  1. DUROTEP [Suspect]
     Route: 062
  2. DUROTEP [Suspect]
     Route: 062
  3. DUROTEP [Suspect]
     Route: 062
  4. DUROTEP [Suspect]
     Indication: MALIGNANT MELANOMA
     Route: 062
  5. DUROTEP [Suspect]
     Indication: METASTASES TO BONE
     Route: 062
  6. LAFUTIDINE [Concomitant]
     Indication: PROPHYLAXIS
     Route: 048
  7. PREDONINE [Concomitant]
     Indication: METASTASES TO CENTRAL NERVOUS SYSTEM
     Route: 048
  8. PREDONINE [Concomitant]
     Indication: ANOREXIA
     Route: 048
  9. BACTRIM [Concomitant]
     Indication: PROPHYLAXIS
     Route: 048
  10. H2 BLOCKER [Concomitant]
     Route: 048
  11. NOVAMIN [Concomitant]
     Indication: ANOREXIA
     Route: 030
  12. NOVAMIN [Concomitant]
     Indication: NAUSEA
     Route: 030
  13. PARIET [Concomitant]
     Indication: ANOREXIA
     Route: 048
  14. PARIET [Concomitant]
     Indication: NAUSEA
     Route: 048
  15. GLYCEOL [Concomitant]
     Indication: METASTASES TO CENTRAL NERVOUS SYSTEM
     Route: 065
  16. GLYCEOL [Concomitant]
     Indication: ANOREXIA
     Route: 065
  17. GLYCEOL [Concomitant]
     Indication: NAUSEA
     Route: 065
  18. GASTER [Concomitant]
     Indication: PROPHYLAXIS
     Route: 065
  19. GASTER [Concomitant]
     Indication: ANOREXIA
     Route: 065
  20. GASTER [Concomitant]
     Indication: NAUSEA
     Route: 065
  21. DECADRON [Concomitant]
     Indication: METASTASES TO CENTRAL NERVOUS SYSTEM
     Route: 065
  22. DECADRON [Concomitant]
     Indication: ANOREXIA
     Route: 065

REACTIONS (3)
  - ANOREXIA [None]
  - DRUG PRESCRIBING ERROR [None]
  - LIVER DISORDER [None]
